FAERS Safety Report 18749598 (Version 2)
Quarter: 2021Q2

REPORT INFORMATION
  Report Type: Spontaneous
  Country: US (occurrence: US)
  Receive Date: 20210117
  Receipt Date: 20210528
  Transmission Date: 20210717
  Serious: No
  Sender: FDA-Public Use
  Company Number: US-CELGENEUS-USA-20210103280

PATIENT
  Age: 82 Year
  Sex: Female

DRUGS (1)
  1. POMALYST [Suspect]
     Active Substance: POMALIDOMIDE
     Indication: PLASMA CELL MYELOMA
     Dosage: 2 MILLIGRAM
     Route: 048
     Dates: start: 20201222

REACTIONS (6)
  - Joint swelling [Unknown]
  - Peripheral swelling [Unknown]
  - Heart rate irregular [Unknown]
  - Dizziness [Unknown]
  - Arthritis [Unknown]
  - Palpitations [Unknown]

NARRATIVE: CASE EVENT DATE: 202105
